FAERS Safety Report 24747822 (Version 1)
Quarter: 2024Q4

REPORT INFORMATION
  Report Type: Spontaneous
  Country: US (occurrence: None)
  Receive Date: 20241218
  Receipt Date: 20241218
  Transmission Date: 20250115
  Serious: Yes (Hospitalization)
  Sender: Public
  Company Number: None

PATIENT
  Age: 59 Year
  Sex: Male
  Weight: 82 kg

DRUGS (1)
  1. APALUTAMIDE [Suspect]
     Active Substance: APALUTAMIDE
     Dates: end: 20240930

REACTIONS (7)
  - Pelvic haematoma [None]
  - Deep vein thrombosis [None]
  - Vascular pseudoaneurysm [None]
  - Gait disturbance [None]
  - Muscular weakness [None]
  - Anaemia [None]
  - Pulmonary embolism [None]

NARRATIVE: CASE EVENT DATE: 20241020
